FAERS Safety Report 23515741 (Version 1)
Quarter: 2024Q1

REPORT INFORMATION
  Report Type: Spontaneous
  Country: US (occurrence: US)
  Receive Date: 20240213
  Receipt Date: 20240213
  Transmission Date: 20240410
  Serious: No
  Sender: FDA-Public Use
  Company Number: US-BRISTOL-MYERS SQUIBB COMPANY-2024-022309

PATIENT
  Age: 73 Year
  Sex: Female

DRUGS (1)
  1. POMALYST [Suspect]
     Active Substance: POMALIDOMIDE
     Indication: Seasonal allergy
     Route: 048
     Dates: start: 20240109

REACTIONS (4)
  - Bronchitis [Unknown]
  - Constipation [Unknown]
  - Palpitations [Unknown]
  - Off label use [Unknown]
